FAERS Safety Report 8920454 (Version 1)
Quarter: 2012Q4

REPORT INFORMATION
  Report Type: 
  Country: MX (occurrence: MX)
  Receive Date: 20121122
  Receipt Date: 20121122
  Transmission Date: 20130627
  Serious: Yes (Life-Threatening, Hospitalization, Other)
  Sender: FDA-Public Use
  Company Number: PHHY2012MX105498

PATIENT
  Age: 62 Year
  Sex: Female

DRUGS (1)
  1. DIOVAN [Suspect]
     Indication: HYPERTENSION
     Dosage: 1 DF, daily
     Route: 048
     Dates: start: 20120801, end: 20120810

REACTIONS (6)
  - Embolism [Recovered/Resolved with Sequelae]
  - Feeling abnormal [Recovered/Resolved with Sequelae]
  - Heart injury [Unknown]
  - Dyspnoea [Recovered/Resolved with Sequelae]
  - Oxygen saturation decreased [Unknown]
  - Syncope [Recovered/Resolved with Sequelae]
